FAERS Safety Report 8088358 (Version 3)
Quarter: 2012Q4

REPORT INFORMATION
  Report Type: 
  Country: US (occurrence: US)
  Receive Date: 20110812
  Receipt Date: 20121203
  Transmission Date: 20130627
  Serious: Yes (Other)
  Sender: FDA-Public Use
  Company Number: US-PFIZER INC-2010179900

PATIENT
  Age: 63 Year
  Sex: Female
  Weight: 82.09 kg

DRUGS (5)
  1. LIPITOR [Suspect]
     Indication: HIGH CHOLESTEROL
     Dosage: UNK
     Dates: start: 2002, end: 200310
  2. LYRICA [Suspect]
     Indication: PAIN
     Dosage: UNK
     Route: 048
  3. LYRICA [Suspect]
     Indication: WEAKNESS IN EXTREMITY
  4. PAROXETINE [Concomitant]
     Indication: DEPRESSION
     Dosage: UNK
  5. ADVAIR [Concomitant]
     Indication: ASTHMA
     Dosage: 250/50, UNK

REACTIONS (15)
  - Rhabdomyolysis [Unknown]
  - Myopathy [Unknown]
  - Myositis [Unknown]
  - Limb injury [Not Recovered/Not Resolved]
  - Muscular weakness [Not Recovered/Not Resolved]
  - Pain in extremity [Not Recovered/Not Resolved]
  - Myalgia [Not Recovered/Not Resolved]
  - Muscle spasms [Unknown]
  - Paraesthesia [Unknown]
  - Fibromyalgia [Unknown]
  - Arthritis [Unknown]
  - Drug ineffective [Unknown]
  - Dry mouth [Unknown]
  - Weight increased [Unknown]
  - Hypertension [Unknown]
